FAERS Safety Report 7556457-0 (Version None)
Quarter: 2011Q2

REPORT INFORMATION
  Report Type: 
  Country: None (occurrence: None)
  Receive Date: 20110620
  Receipt Date: 20110614
  Transmission Date: 20111010
  Serious: Yes (Other)
  Sender: FDA-Public Use
  Company Number: DE-AMGEN-DEUSP2011028632

PATIENT

DRUGS (2)
  1. CHEMOTHERAPEUTICS [Concomitant]
  2. NEULASTA [Suspect]
     Indication: CHEMOTHERAPY

REACTIONS (1)
  - MEDICATION ERROR [None]
